FAERS Safety Report 16287990 (Version 1)
Quarter: 2019Q2

REPORT INFORMATION
  Report Type: Report from Study
  Country: US (occurrence: US)
  Receive Date: 20190508
  Receipt Date: 20190508
  Transmission Date: 20190711
  Serious: Yes (Hospitalization, Other)
  Sender: FDA-Public Use
  Company Number: US-MYLANLABS-2019M1044062

PATIENT
  Age: 63 Year
  Sex: Female

DRUGS (61)
  1. HYDRALAZINE [Concomitant]
     Active Substance: HYDRALAZINE HYDROCHLORIDE
  2. ERGOCALCIFEROL. [Concomitant]
     Active Substance: ERGOCALCIFEROL
  3. TRIMETHOPRIM SULFAMETHOXAZOLE [Concomitant]
     Active Substance: SULFAMETHOXAZOLE\TRIMETHOPRIM
  4. PIPERACILLIN AND TAZOBACTAM [Concomitant]
     Active Substance: PIPERACILLIN SODIUM\TAZOBACTAM SODIUM
  5. SODIUM CHLORIDE. [Concomitant]
     Active Substance: SODIUM CHLORIDE
  6. CLONIDINE. [Concomitant]
     Active Substance: CLONIDINE
  7. PREDNISONE. [Concomitant]
     Active Substance: PREDNISONE
     Indication: IMMUNOSUPPRESSION
  8. RED BLOOD CELLS, CONCENTRATED [Concomitant]
     Active Substance: HUMAN RED BLOOD CELL
     Dosage: UNK
  9. FUROSEMIDE. [Suspect]
     Active Substance: FUROSEMIDE
     Indication: PRODUCT USED FOR UNKNOWN INDICATION
     Dosage: UNK
  10. CIPROFLOXACIN. [Concomitant]
     Active Substance: CIPROFLOXACIN
  11. POTASSIUM CHLORIDE. [Concomitant]
     Active Substance: POTASSIUM CHLORIDE
  12. SODIUM BICARBONATE. [Concomitant]
     Active Substance: SODIUM BICARBONATE
  13. ONDANSETRON [Concomitant]
     Active Substance: ONDANSETRON
  14. MMF [Concomitant]
     Active Substance: MYCOPHENOLATE MOFETIL
     Indication: IMMUNOSUPPRESSION
  15. TACROLIMUS. [Concomitant]
     Active Substance: TACROLIMUS
     Indication: IMMUNOSUPPRESSION
  16. ANTITHYMOCYTE IMMUNOGLOBULIN [Concomitant]
     Active Substance: THYMOCYTE IMMUNE GLOBULIN NOS
  17. OMEPRAZOLE. [Concomitant]
     Active Substance: OMEPRAZOLE
  18. MAGNESIUM SULFATE. [Concomitant]
     Active Substance: MAGNESIUM SULFATE
  19. CLOTRIMAZOLE. [Concomitant]
     Active Substance: CLOTRIMAZOLE
  20. LANTUS [Concomitant]
     Active Substance: INSULIN GLARGINE
  21. CALCIUM CHLORIDE. [Concomitant]
     Active Substance: CALCIUM CHLORIDE
  22. MANNITOL. [Concomitant]
     Active Substance: MANNITOL
  23. AMLODIPINE [Concomitant]
     Active Substance: AMLODIPINE BESYLATE
  24. CALCIUM ACETATE. [Concomitant]
     Active Substance: CALCIUM ACETATE
  25. VANCOMYCIN [Concomitant]
     Active Substance: VANCOMYCIN
  26. LISINOPRIL. [Concomitant]
     Active Substance: LISINOPRIL
  27. LEVEMIR [Concomitant]
     Active Substance: INSULIN DETEMIR
  28. NORMAL SALINE [Concomitant]
     Active Substance: SODIUM CHLORIDE
  29. LEVAQUIN [Concomitant]
     Active Substance: LEVOFLOXACIN
  30. PHENERGAN [Concomitant]
     Active Substance: PROMETHAZINE HYDROCHLORIDE
  31. INSULIN LISPRO [Concomitant]
     Active Substance: INSULIN LISPRO
  32. RENA-VITE [Concomitant]
     Active Substance: ASCORBIC ACID\BIOTIN\CALCIUM PANTOTHENATE\CYANOCOBALAMIN\FOLIC ACID\NIACINAMIDE\PYRIDOXINE HYDROCHLORIDE\RIBOFLAVIN\THIAMINE MONONITRATE
  33. DIPHENHYDRAMINE. [Concomitant]
     Active Substance: DIPHENHYDRAMINE
  34. CEFTRIAXONE. [Concomitant]
     Active Substance: CEFTRIAXONE
  35. ASPIRIN                            /00002701/ [Concomitant]
     Active Substance: ASPIRIN
  36. HYDROMORPHONE [Concomitant]
     Active Substance: HYDROMORPHONE
  37. LOSARTAN. [Concomitant]
     Active Substance: LOSARTAN
  38. MPA                                /00115202/ [Concomitant]
     Active Substance: MEDROXYPROGESTERONE ACETATE
     Indication: IMMUNOSUPPRESSION
  39. DOCUSATE [Concomitant]
     Active Substance: DOCUSATE
  40. LABETALOL [Concomitant]
     Active Substance: LABETALOL\LABETALOL HYDROCHLORIDE
  41. PANTOPRAZOLE [Concomitant]
     Active Substance: PANTOPRAZOLE
  42. GLIMEPIRIDE. [Concomitant]
     Active Substance: GLIMEPIRIDE
  43. ELECTROLYTES NOS [Concomitant]
     Active Substance: ELECTROLYTES NOS
  44. PHENYTOIN. [Concomitant]
     Active Substance: PHENYTOIN
  45. CARVEDILOL. [Concomitant]
     Active Substance: CARVEDILOL
  46. ACETAMINOPHEN. [Concomitant]
     Active Substance: ACETAMINOPHEN
  47. SOLU-CORTEF [Concomitant]
     Active Substance: HYDROCORTISONE SODIUM SUCCINATE
  48. CEFEPIME [Concomitant]
     Active Substance: CEFEPIME HYDROCHLORIDE
  49. PIPERACILLIN AND TAZOBACTAM [Concomitant]
     Active Substance: PIPERACILLIN SODIUM\TAZOBACTAM SODIUM
  50. LASIX [Suspect]
     Active Substance: FUROSEMIDE
     Indication: OEDEMA PERIPHERAL
     Dosage: UNK
     Dates: start: 20160530, end: 20160630
  51. ALBUMIN [Concomitant]
     Active Substance: ALBUMIN HUMAN
  52. HEPARIN [Concomitant]
     Active Substance: HEPARIN SODIUM
  53. GABAPENTIN. [Concomitant]
     Active Substance: GABAPENTIN
  54. ROCEPHIN [Concomitant]
     Active Substance: CEFTRIAXONE SODIUM
  55. LEVETIRACETAM. [Concomitant]
     Active Substance: LEVETIRACETAM
  56. BISACODYL. [Concomitant]
     Active Substance: BISACODYL
  57. ACETAMINOPHEN AND CODEINE [Concomitant]
     Active Substance: ACETAMINOPHEN\CODEINE PHOSPHATE
  58. VALGANCICLOVIR. [Concomitant]
     Active Substance: VALGANCICLOVIR
  59. FAMOTIDINE. [Concomitant]
     Active Substance: FAMOTIDINE
  60. CISATRACURIUM. [Concomitant]
     Active Substance: CISATRACURIUM
  61. METHYLPREDNISOLONE                 /00049602/ [Concomitant]
     Active Substance: METHYLPREDNISOLONE
     Indication: IMMUNOSUPPRESSION

REACTIONS (20)
  - Acute kidney injury [Recovered/Resolved]
  - Hyperkalaemia [Unknown]
  - Procedural pain [Unknown]
  - Musculoskeletal disorder [Unknown]
  - Haematuria [Unknown]
  - Hyperglycaemia [Unknown]
  - Dose calculation error [Unknown]
  - Urinary tract infection [Recovered/Resolved]
  - Hypervolaemia [Unknown]
  - Pyuria [Unknown]
  - Hypotension [Unknown]
  - Oedema peripheral [Recovered/Resolved]
  - Urine flow decreased [Unknown]
  - Pulmonary congestion [Unknown]
  - Delayed graft function [Recovered/Resolved]
  - Hypertension [Unknown]
  - Acidosis [Unknown]
  - Anaemia [Unknown]
  - Azotaemia [Unknown]
  - Blood creatinine increased [Recovered/Resolved]

NARRATIVE: CASE EVENT DATE: 20160522
